FAERS Safety Report 4709864-5 (Version None)
Quarter: 2005Q3

REPORT INFORMATION
  Report Type: 
  Country: None (occurrence: None)
  Receive Date: 20050708
  Receipt Date: 20050623
  Transmission Date: 20060218
  Serious: Yes (Other)
  Sender: FDA-Public Use
  Company Number: US-GLAXOSMITHKLINE-A0564002A

PATIENT
  Age: 82 Year
  Sex: Female
  Weight: 68 kg

DRUGS (9)
  1. CITRUCEL SUGAR-FREE SUSPENSION ORANGE [Suspect]
     Indication: DIVERTICULITIS
     Route: 048
     Dates: start: 20041201, end: 20050601
  2. BETIMOL [Concomitant]
  3. RANITIDINE [Concomitant]
  4. CALCIUM GLUCONATE [Concomitant]
  5. ASPIRIN [Concomitant]
  6. PLAVIX [Concomitant]
     Dates: end: 20040501
  7. MEZIQUINE [Concomitant]
     Dosage: 25MG AS REQUIRED
  8. AMBIEN [Concomitant]
  9. LEVOTHYROXINE [Concomitant]
     Dates: start: 20040101

REACTIONS (2)
  - BURN OF INTERNAL ORGANS [None]
  - RECTAL HAEMORRHAGE [None]
